FAERS Safety Report 17156251 (Version 1)
Quarter: 2019Q4

REPORT INFORMATION
  Report Type: Spontaneous
  Country: CA (occurrence: CA)
  Receive Date: 20191216
  Receipt Date: 20191216
  Transmission Date: 20200122
  Serious: Yes (Other)
  Sender: FDA-Public Use
  Company Number: CA-ORION CORPORATION ORION PHARMA-TREX2019-5870

PATIENT
  Age: 56 Year
  Sex: Female

DRUGS (2)
  1. MOBICOX [Concomitant]
     Active Substance: MELOXICAM
     Route: 065
  2. METHOTREXATE (TRADE NAME UNKNOWN) [Suspect]
     Active Substance: METHOTREXATE
     Indication: RHEUMATOID ARTHRITIS
     Route: 065
     Dates: start: 2013

REACTIONS (4)
  - Herpes zoster [Unknown]
  - Alopecia [Unknown]
  - Drug intolerance [Unknown]
  - Muscle disorder [Unknown]
